FAERS Safety Report 14069328 (Version 1)
Quarter: 2017Q4

REPORT INFORMATION
  Report Type: Spontaneous
  Country: FR (occurrence: FR)
  Receive Date: 20171010
  Receipt Date: 20171010
  Transmission Date: 20180321
  Serious: Yes (Life-Threatening, Hospitalization, Other)
  Sender: FDA-Public Use
  Company Number: FR-PFIZER INC-2017431242

PATIENT
  Age: 84 Year
  Sex: Male

DRUGS (5)
  1. PREVISCAN (FLUINDIONE) [Interacting]
     Active Substance: FLUINDIONE
     Indication: ARRHYTHMIA
     Dosage: 20 MG, 1X/DAY (EVENING)
     Route: 048
     Dates: start: 2009, end: 20170905
  2. PRAVASTATIN. [Concomitant]
     Active Substance: PRAVASTATIN
     Dosage: 20 MG, 1X/DAY
     Route: 048
  3. DALACINE [Suspect]
     Active Substance: CLINDAMYCIN HYDROCHLORIDE
     Indication: SKIN ULCER
     Dosage: 600 MG, 3X/DAY
     Route: 048
     Dates: start: 201706, end: 20170905
  4. ASPIRINE PROTECT [Concomitant]
     Active Substance: ASPIRIN
     Dosage: 100 MG, 1X/DAY
     Route: 048
  5. FUROSEMIDE. [Concomitant]
     Active Substance: FUROSEMIDE
     Dosage: 40 MG, 1X/DAY
     Route: 048

REACTIONS (5)
  - Subdural haematoma [Recovering/Resolving]
  - Fall [Not Recovered/Not Resolved]
  - Drug interaction [Not Recovered/Not Resolved]
  - Balance disorder [Not Recovered/Not Resolved]
  - Walking disability [Not Recovered/Not Resolved]

NARRATIVE: CASE EVENT DATE: 20170822
